FAERS Safety Report 19098212 (Version 1)
Quarter: 2021Q2

REPORT INFORMATION
  Report Type: Report from Study
  Country: AU (occurrence: AU)
  Receive Date: 20210406
  Receipt Date: 20210406
  Transmission Date: 20210717
  Serious: Yes (Hospitalization, Other)
  Sender: FDA-Public Use
  Company Number: AU-SHIRE-AU201943948

PATIENT
  Sex: Female

DRUGS (8)
  1. TEDUGLUTIDE [Suspect]
     Active Substance: TEDUGLUTIDE
     Indication: SHORT-BOWEL SYNDROME
     Dosage: UNK , 1X/DAY:QD
     Route: 058
     Dates: start: 20191202
  2. GASTROSTOP [Concomitant]
     Dosage: UNK
     Route: 065
  3. UP N GO [Concomitant]
     Route: 065
  4. SUSTAGEN [Concomitant]
     Route: 065
  5. TEDUGLUTIDE [Suspect]
     Active Substance: TEDUGLUTIDE
     Indication: SHORT-BOWEL SYNDROME
     Dosage: UNK , 1X/DAY:QD
     Route: 058
     Dates: start: 20191202
  6. TEDUGLUTIDE [Suspect]
     Active Substance: TEDUGLUTIDE
     Indication: SHORT-BOWEL SYNDROME
     Dosage: UNK , 1X/DAY:QD
     Route: 058
     Dates: start: 20191202
  7. TEDUGLUTIDE [Suspect]
     Active Substance: TEDUGLUTIDE
     Indication: SHORT-BOWEL SYNDROME
     Dosage: UNK , 1X/DAY:QD
     Route: 058
     Dates: start: 20191202
  8. CODEINE [Concomitant]
     Active Substance: CODEINE
     Dosage: UNK
     Route: 065

REACTIONS (12)
  - Nausea [Unknown]
  - Oedema peripheral [Unknown]
  - Faeces soft [Unknown]
  - Frequent bowel movements [Unknown]
  - Intervertebral discitis [Unknown]
  - Pain [Not Recovered/Not Resolved]
  - Decreased appetite [Unknown]
  - Abdominal pain [Unknown]
  - Abdominal discomfort [Unknown]
  - Face oedema [Unknown]
  - Rash pruritic [Not Recovered/Not Resolved]
  - Erythema [Not Recovered/Not Resolved]
